FAERS Safety Report 16760789 (Version 1)
Quarter: 2019Q4

REPORT INFORMATION
  Report Type: Spontaneous
  Country: US (occurrence: US)
  Receive Date: 20190830
  Receipt Date: 20190830
  Transmission Date: 20200122
  Serious: Yes (Hospitalization)
  Sender: FDA-Public Use
  Company Number: None

PATIENT
  Age: 56 Year
  Sex: Female

DRUGS (8)
  1. OCTREOTIDE. [Suspect]
     Active Substance: OCTREOTIDE
     Route: 058
     Dates: start: 20180712
  2. TORSEMIDE. [Concomitant]
     Active Substance: TORSEMIDE
  3. DOXYCYCLINE. [Concomitant]
     Active Substance: DOXYCYCLINE
  4. WARFARIN [Concomitant]
     Active Substance: WARFARIN
  5. FOLIC ACID. [Concomitant]
     Active Substance: FOLIC ACID
  6. PANTOPRAZOLE [Concomitant]
     Active Substance: PANTOPRAZOLE
  7. MIRTAZEPINE [Concomitant]
     Active Substance: MIRTAZAPINE
  8. FEROSUL [Concomitant]

REACTIONS (2)
  - Full blood count decreased [None]
  - Therapy cessation [None]

NARRATIVE: CASE EVENT DATE: 20190819
